FAERS Safety Report 24173418 (Version 1)
Quarter: 2024Q3

REPORT INFORMATION
  Report Type: Report from Study
  Country: US (occurrence: None)
  Receive Date: 20240805
  Receipt Date: 20240805
  Transmission Date: 20241016
  Serious: Yes (Other)
  Sender: ASTRAZENECA
  Company Number: 2021A557157

PATIENT
  Sex: Female

DRUGS (1)
  1. CALQUENCE [Suspect]
     Active Substance: ACALABRUTINIB
     Indication: Lymphoid leukaemia (in remission)
     Route: 048

REACTIONS (3)
  - Barrett^s oesophagus [Unknown]
  - Drug interaction [Unknown]
  - Laboratory test abnormal [Unknown]
